FAERS Safety Report 8609400-7 (Version None)
Quarter: 2012Q3

REPORT INFORMATION
  Report Type: 
  Country: None (occurrence: None)
  Receive Date: 20120821
  Receipt Date: 20120815
  Transmission Date: 20120928
  Serious: Yes (Other)
  Sender: FDA-Public Use
  Company Number: GB-BAYER-2012-085825

PATIENT
  Sex: Female

DRUGS (3)
  1. VOLTAREN [Suspect]
     Indication: INFLAMMATION
     Dosage: UNK
     Route: 061
     Dates: start: 20120714, end: 20120717
  2. OMEPRAZOLE [Concomitant]
     Indication: GASTRITIS
  3. NAPROXEN SODIUM [Suspect]
     Indication: INFLAMMATION
     Dosage: UNK
     Dates: start: 20120701, end: 20120714

REACTIONS (12)
  - DIARRHOEA [None]
  - RASH [None]
  - SWELLING [None]
  - BLISTER [None]
  - DRY MOUTH [None]
  - GAIT DISTURBANCE [None]
  - PAIN [None]
  - FEELING HOT [None]
  - MOVEMENT DISORDER [None]
  - ABDOMINAL PAIN UPPER [None]
  - INSOMNIA [None]
  - SALMONELLOSIS [None]
